FAERS Safety Report 9982739 (Version 1)
Quarter: 2014Q1

REPORT INFORMATION
  Report Type: Report from Study
  Country: US (occurrence: US)
  Receive Date: 20140307
  Receipt Date: 20140307
  Transmission Date: 20141002
  Serious: No
  Sender: FDA-Public Use
  Company Number: US-ABBVIE-13P-163-1180892-00

PATIENT
  Age: 58 Year
  Sex: Male
  Weight: 100.33 kg

DRUGS (5)
  1. HUMIRA [Suspect]
     Indication: CROHN^S DISEASE
     Route: 058
     Dates: start: 201301, end: 20131026
  2. HUMIRA [Suspect]
     Route: 058
     Dates: start: 201312
  3. ATENOLOL [Concomitant]
     Indication: CARDIAC DISORDER
     Dates: start: 2002
  4. LOSARTAN [Concomitant]
     Indication: CARDIAC DISORDER
     Dates: start: 2002
  5. ANTIBIOTICS [Concomitant]
     Indication: PRODUCT USED FOR UNKNOWN INDICATION

REACTIONS (6)
  - Hypersomnia [Recovered/Resolved]
  - Candida infection [Recovered/Resolved]
  - Asthenia [Recovered/Resolved]
  - Nasopharyngitis [Unknown]
  - Crohn^s disease [Unknown]
  - Immunodeficiency [Unknown]
